FAERS Safety Report 7055318 (Version 2)
Quarter: 2012Q4

REPORT INFORMATION
  Report Type: 
  Country: US (occurrence: US)
  Receive Date: 20090720
  Receipt Date: 20120927
  Transmission Date: 20130627
  Serious: Yes (Other)
  Sender: FDA-Public Use
  Company Number: US-ASTRAZENECA-2009UW19501

PATIENT
  Age: 65 Year
  Sex: Female
  Weight: 83 kg

DRUGS (6)
  1. SEROQUEL [Suspect]
     Indication: SCHIZOAFFECTIVE DISORDER
     Route: 048
  2. SEROQUEL [Suspect]
     Indication: ANXIETY
     Route: 048
  3. SEROQUEL [Suspect]
     Indication: SCHIZOAFFECTIVE DISORDER
     Route: 048
  4. SEROQUEL [Suspect]
     Indication: ANXIETY
     Route: 048
  5. TYLENOL [Concomitant]
     Dosage: PRN
     Route: 048
  6. PHENERGAN [Concomitant]
     Indication: MIGRAINE
     Dosage: PRN
     Route: 048

REACTIONS (2)
  - Fall [Unknown]
  - Spinal cord injury [Unknown]
